FAERS Safety Report 5567090-4 (Version None)
Quarter: 2007Q4

REPORT INFORMATION
  Report Type: 
  Country: None (occurrence: None)
  Receive Date: 20071219
  Receipt Date: 20060717
  Transmission Date: 20080405
  Serious: Yes (Death, Hospitalization, Congenital Anomaly)
  Sender: FDA-Public Use
  Company Number: ES-ROCHE-455774

PATIENT
  Sex: Male

DRUGS (1)
  1. ISOTRETINOIN [Suspect]
     Indication: ACNE
     Dosage: SEVERAL MONTHS OF THERAPY.

REACTIONS (25)
  - ANOTIA [None]
  - AORTA HYPOPLASIA [None]
  - APNOEA [None]
  - CEREBELLAR ATROPHY [None]
  - CEREBRAL DISORDER [None]
  - CLEFT LIP [None]
  - CLEFT PALATE [None]
  - CONGENITAL AORTIC ATRESIA [None]
  - CRYPTORCHISM [None]
  - DYSPNOEA [None]
  - ENCEPHALOCELE [None]
  - ENCEPHALOPATHY [None]
  - EXOSTOSIS [None]
  - EXTERNAL EAR DISORDER [None]
  - HYPERTELORISM OF ORBIT [None]
  - HYPOTONIA [None]
  - HYPOVENTILATION [None]
  - ILL-DEFINED DISORDER [None]
  - LISSENCEPHALY [None]
  - PATENT DUCTUS ARTERIOSUS [None]
  - PREMATURE CLOSURE OF CRANIAL SUTURES [None]
  - SHOCK [None]
  - SINGLE UMBILICAL ARTERY [None]
  - UNEVALUABLE EVENT [None]
  - VENTRICULAR SEPTAL DEFECT [None]
